FAERS Safety Report 4536399-5 (Version None)
Quarter: 2004Q4

REPORT INFORMATION
  Report Type: 
  Country: None (occurrence: None)
  Receive Date: 20041223
  Receipt Date: 20040921
  Transmission Date: 20050328
  Serious: No
  Sender: FDA-Public Use
  Company Number: US-GLAXOSMITHKLINE-A0526694A

PATIENT
  Age: 82 Year
  Sex: Male

DRUGS (4)
  1. FLONASE [Suspect]
     Dosage: 2SPR PER DAY
     Route: 045
  2. HYTRIN [Concomitant]
  3. SAW PALMETTO [Concomitant]
  4. ASPIRIN [Concomitant]

REACTIONS (1)
  - DYSPNOEA [None]
